FAERS Safety Report 7318669-0 (Version None)
Quarter: 2011Q1

REPORT INFORMATION
  Report Type: 
  Country: None (occurrence: None)
  Receive Date: 20110228
  Receipt Date: 20110222
  Transmission Date: 20110831
  Serious: Yes (Other)
  Sender: FDA-Public Use
  Company Number: CA-BRISTOL-MYERS SQUIBB COMPANY-15492176

PATIENT
  Age: 64 Year
  Sex: Male

DRUGS (1)
  1. COUMADIN [Suspect]

REACTIONS (1)
  - JOINT EFFUSION [None]
